FAERS Safety Report 23953370 (Version 2)
Quarter: 2025Q3

REPORT INFORMATION
  Report Type: Spontaneous
  Country: US (occurrence: US)
  Receive Date: 20240608
  Receipt Date: 20250901
  Transmission Date: 20251021
  Serious: No
  Sender: SANOFI AVENTIS
  Company Number: US-SA-SAC20240606000107

PATIENT
  Sex: Female
  Weight: 68 kg

DRUGS (11)
  1. DUPIXENT [Suspect]
     Active Substance: DUPILUMAB
     Indication: Asthma
     Dosage: 300 MG, QOW
     Route: 058
     Dates: start: 2022
  2. LINZESS [Concomitant]
     Active Substance: LINACLOTIDE
  3. MELOXICAM [Concomitant]
     Active Substance: MELOXICAM
  4. MEMANTINE [Concomitant]
     Active Substance: MEMANTINE
  5. MONTELUKAST [Concomitant]
     Active Substance: MONTELUKAST
  6. TIZANIDINE [Concomitant]
     Active Substance: TIZANIDINE
  7. TOPIRAMATE [Concomitant]
     Active Substance: TOPIRAMATE
  8. PREGABALIN [Concomitant]
     Active Substance: PREGABALIN
  9. SPIRONOLACTONE [Concomitant]
     Active Substance: SPIRONOLACTONE
  10. BREZTRI [Concomitant]
     Active Substance: BUDESONIDE\FORMOTEROL\GLYCOPYRROLATE
  11. AJOVY [Concomitant]
     Active Substance: FREMANEZUMAB-VFRM

REACTIONS (5)
  - Weight increased [Not Recovered/Not Resolved]
  - Dyspnoea [Unknown]
  - Loss of personal independence in daily activities [Unknown]
  - Memory impairment [Unknown]
  - Drug effect less than expected [Unknown]
